FAERS Safety Report 25114004 (Version 1)
Quarter: 2025Q1

REPORT INFORMATION
  Report Type: Spontaneous
  Country: JP (occurrence: JP)
  Receive Date: 20250324
  Receipt Date: 20250324
  Transmission Date: 20250408
  Serious: Yes (Death, Other)
  Sender: TAKEDA
  Company Number: JP-TAKEDA-2025TUS028597

PATIENT
  Age: 56 Year
  Sex: Female

DRUGS (1)
  1. BRIGATINIB [Suspect]
     Active Substance: BRIGATINIB
     Indication: Inflammatory myofibroblastic tumour

REACTIONS (3)
  - Inflammatory myofibroblastic tumour [Fatal]
  - Large intestinal obstruction [Unknown]
  - Off label use [Unknown]
